FAERS Safety Report 15357035 (Version 1)
Quarter: 2018Q3

REPORT INFORMATION
  Report Type: Spontaneous
  Country: US (occurrence: US)
  Receive Date: 20180906
  Receipt Date: 20180906
  Transmission Date: 20181010
  Serious: No
  Sender: FDA-Public Use
  Company Number: US-GLAXOSMITHKLINE-US2018156521

PATIENT
  Sex: Female
  Weight: 50 kg

DRUGS (1)
  1. EQUATE NICOTINE [Suspect]
     Active Substance: NICOTINE
     Indication: PRODUCT USED FOR UNKNOWN INDICATION
     Dosage: 14 MG, UNK
     Dates: start: 20180820, end: 20180824

REACTIONS (4)
  - Headache [Unknown]
  - Application site pruritus [Unknown]
  - Abdominal discomfort [Unknown]
  - Application site erythema [Unknown]
